FAERS Safety Report 21946952 (Version 1)
Quarter: 2023Q1

REPORT INFORMATION
  Report Type: Spontaneous
  Country: US (occurrence: None)
  Receive Date: 20230202
  Receipt Date: 20230202
  Transmission Date: 20230418
  Serious: No
  Sender: FDA-Public Use
  Company Number: None

PATIENT
  Sex: 0

DRUGS (1)
  1. JUNEL FE 1/20 [Suspect]
     Active Substance: ETHINYL ESTRADIOL\NORETHINDRONE ACETATE

REACTIONS (2)
  - Intermenstrual bleeding [None]
  - Muscle spasms [None]
